FAERS Safety Report 17420618 (Version 3)
Quarter: 2020Q4

REPORT INFORMATION
  Report Type: Report from Study
  Country: TW (occurrence: TW)
  Receive Date: 20200214
  Receipt Date: 20201019
  Transmission Date: 20210113
  Serious: Yes (Death, Life-Threatening, Hospitalization)
  Sender: FDA-Public Use
  Company Number: TW-ASTRAZENECA-2019SF18799

PATIENT
  Age: 23888 Day
  Sex: Male

DRUGS (47)
  1. CARBOPLATIN. [Suspect]
     Active Substance: CARBOPLATIN
     Indication: NON-SMALL CELL LUNG CANCER STAGE IV
     Dosage: 622.3MG ONCE/SINGLE ADMINISTRATION
     Route: 065
     Dates: start: 20190723, end: 20190723
  2. PALONOSETRON. [Concomitant]
     Active Substance: PALONOSETRON HYDROCHLORIDE
     Indication: PREMEDICATION
     Dosage: 0.25MG ONCE/SINGLE ADMINISTRATION
     Route: 042
     Dates: start: 20190723, end: 20190723
  3. EMEND [Concomitant]
     Active Substance: APREPITANT
     Indication: PROPHYLAXIS OF NAUSEA AND VOMITING
     Route: 048
     Dates: start: 20190724, end: 20190728
  4. CONCOR [Concomitant]
     Active Substance: BISOPROLOL FUMARATE
     Indication: SINUS TACHYCARDIA
     Dosage: 1.25MG ONCE/SINGLE ADMINISTRATION
     Route: 048
     Dates: start: 20190731, end: 20190731
  5. RASITOL [Concomitant]
     Indication: HYPERTENSION
     Dosage: 40.0MG ONCE/SINGLE ADMINISTRATION
     Route: 048
     Dates: start: 20190813, end: 20190813
  6. K-GLU [Concomitant]
     Indication: HYPOKALAEMIA
     Dosage: 20.0MEQ ONCE/SINGLE ADMINISTRATION
     Route: 048
     Dates: start: 20190803, end: 20190803
  7. SPIRONOLACTONE. [Concomitant]
     Active Substance: SPIRONOLACTONE
     Indication: HYPERTENSION
     Route: 048
     Dates: start: 20190813
  8. RASITOL [Concomitant]
     Indication: HYPERTENSION
     Route: 048
     Dates: start: 20190629, end: 20190703
  9. NAB-PACLITAXEL [Suspect]
     Active Substance: PACLITAXEL
     Indication: NON-SMALL CELL LUNG CANCER STAGE IV
     Dosage: 164.0MG ONCE/SINGLE ADMINISTRATION
     Route: 042
     Dates: start: 20190723, end: 20190723
  10. ACTEIN [Concomitant]
     Indication: SPUTUM DECREASED
     Route: 048
     Dates: start: 20190629, end: 20190728
  11. TRANSAMIN [Concomitant]
     Active Substance: TRANEXAMIC ACID
     Indication: HAEMOPTYSIS
     Dosage: 250.0MG ONCE/SINGLE ADMINISTRATION
     Route: 042
     Dates: start: 20190806, end: 20190812
  12. METOCLOPRAMIDE. [Concomitant]
     Active Substance: METOCLOPRAMIDE
     Indication: PREMEDICATION
     Route: 048
     Dates: start: 20190724, end: 20190728
  13. ENCORE [Concomitant]
     Indication: INCREASED VISCOSITY OF UPPER RESPIRATORY SECRETION
     Route: 055
     Dates: start: 20190729, end: 20190729
  14. NEBILET [Concomitant]
     Active Substance: NEBIVOLOL
     Indication: HYPERTENSION
     Route: 048
     Dates: start: 20190731, end: 20190817
  15. FUROSEMIDE. [Concomitant]
     Active Substance: FUROSEMIDE
     Indication: ASCITES
     Dosage: 20.0MG ONCE/SINGLE ADMINISTRATION
     Route: 042
     Dates: start: 20190803, end: 20190803
  16. DEXAMETHASONE. [Concomitant]
     Active Substance: DEXAMETHASONE
     Indication: PREMEDICATION
     Dosage: 10.0MG ONCE/SINGLE ADMINISTRATION
     Route: 042
     Dates: start: 20190723, end: 20190723
  17. HERBESSER [Concomitant]
     Active Substance: DILTIAZEM HYDROCHLORIDE
     Indication: SINUS TACHYCARDIA
     Dosage: 30.0MG ONCE/SINGLE ADMINISTRATION
     Route: 048
     Dates: start: 20190810
  18. SPIRONOLACTONE. [Concomitant]
     Active Substance: SPIRONOLACTONE
     Indication: HYPERTENSION
     Route: 048
     Dates: start: 20190731, end: 20190810
  19. PIPERACILLIN/TAZOBACTAM [Concomitant]
     Active Substance: PIPERACILLIN SODIUM\TAZOBACTAM SODIUM
     Indication: PNEUMONITIS
     Route: 042
     Dates: start: 20190729, end: 20190729
  20. LACTULOSE. [Concomitant]
     Active Substance: LACTULOSE
     Indication: JAUNDICE
     Route: 048
     Dates: start: 20190731, end: 20190802
  21. LACTULOSE. [Concomitant]
     Active Substance: LACTULOSE
     Indication: JAUNDICE
     Route: 048
     Dates: start: 20190808, end: 20190813
  22. LACTULOSE. [Concomitant]
     Active Substance: LACTULOSE
     Indication: JAUNDICE
     Route: 048
     Dates: start: 20190813
  23. NEBILET [Concomitant]
     Active Substance: NEBIVOLOL
     Indication: HYPERTENSION
     Route: 048
     Dates: start: 20190629, end: 20190703
  24. TRANSAMIN [Concomitant]
     Active Substance: TRANEXAMIC ACID
     Indication: HAEMOPTYSIS
     Route: 048
     Dates: start: 20190703, end: 20190729
  25. MEDICON-A [Concomitant]
     Indication: HAEMOPTYSIS
     Route: 048
     Dates: start: 20190703, end: 20190813
  26. DEXAMETHASONE. [Concomitant]
     Active Substance: DEXAMETHASONE
     Indication: PREMEDICATION
     Dosage: 20.0MG ONCE/SINGLE ADMINISTRATION
     Route: 042
     Dates: start: 20190723, end: 20190723
  27. NOVAMIN [Concomitant]
     Indication: PREMEDICATION
     Route: 048
     Dates: start: 20190724, end: 20190728
  28. PARAMOL [Concomitant]
     Indication: CHEST PAIN
     Route: 048
     Dates: start: 20190730, end: 20190813
  29. HERBESSER [Concomitant]
     Active Substance: DILTIAZEM HYDROCHLORIDE
     Indication: SINUS TACHYCARDIA
     Dosage: 30.0MG ONCE/SINGLE ADMINISTRATION
     Route: 048
     Dates: start: 20190731
  30. FAMOTIDINE. [Concomitant]
     Active Substance: FAMOTIDINE
     Indication: ABDOMINAL DISTENSION
     Dosage: 20.0MG ONCE/SINGLE ADMINISTRATION
     Route: 048
     Dates: start: 20190803, end: 20190803
  31. TRANSAMIN [Concomitant]
     Active Substance: TRANEXAMIC ACID
     Indication: HAEMOPTYSIS
     Dosage: 250.0MG ONCE/SINGLE ADMINISTRATION
     Route: 042
     Dates: start: 20190730, end: 20190806
  32. METOCLOPRAMIDE. [Concomitant]
     Active Substance: METOCLOPRAMIDE
     Indication: PREMEDICATION
     Route: 048
     Dates: start: 20190813
  33. MEPEM [Concomitant]
     Active Substance: MEROPENEM
     Indication: PNEUMONITIS
     Route: 042
     Dates: start: 20190730, end: 20190813
  34. HERBESSER [Concomitant]
     Active Substance: DILTIAZEM HYDROCHLORIDE
     Indication: SINUS TACHYCARDIA
     Dosage: 30.0MG ONCE/SINGLE ADMINISTRATION
     Route: 048
     Dates: start: 20190731, end: 20190731
  35. KCL [Concomitant]
     Active Substance: POTASSIUM CHLORIDE
     Indication: HYPOKALAEMIA
     Dosage: 20.0MEQ ONCE/SINGLE ADMINISTRATION
     Route: 042
     Dates: start: 20190802, end: 20190803
  36. FAMOTIDINE. [Concomitant]
     Active Substance: FAMOTIDINE
     Indication: ABDOMINAL DISTENSION
     Dosage: 20.0MG ONCE/SINGLE ADMINISTRATION
     Route: 048
     Dates: start: 20190803
  37. ACETAMINOPHEN. [Concomitant]
     Active Substance: ACETAMINOPHEN
     Indication: PROPHYLAXIS
     Route: 048
     Dates: start: 20190725, end: 20190729
  38. DURVALUMAB. [Suspect]
     Active Substance: DURVALUMAB
     Indication: NON-SMALL CELL LUNG CANCER STAGE IV
     Dosage: 15.0MG ONCE/SINGLE ADMINISTRATION
     Route: 042
     Dates: start: 20190723, end: 20190723
  39. TRANSAMIN [Concomitant]
     Active Substance: TRANEXAMIC ACID
     Indication: HAEMOPTYSIS
     Dosage: 250.0MG ONCE/SINGLE ADMINISTRATION
     Route: 042
     Dates: start: 20190730, end: 20190806
  40. SPIRONOLACTONE. [Concomitant]
     Active Substance: SPIRONOLACTONE
     Indication: HYPERTENSION
     Route: 048
     Dates: start: 20190629, end: 20190803
  41. RASITOL [Concomitant]
     Indication: HYPERTENSION
     Route: 048
     Dates: start: 20190731
  42. K-GLU [Concomitant]
     Indication: HYPOKALAEMIA
     Dosage: 20.0MEQ ONCE/SINGLE ADMINISTRATION
     Route: 048
     Dates: start: 20190803, end: 20190805
  43. LACTULOSE. [Concomitant]
     Active Substance: LACTULOSE
     Indication: JAUNDICE
     Route: 048
     Dates: start: 20190807, end: 20190808
  44. ACTEIN [Concomitant]
     Indication: SPUTUM DECREASED
     Route: 048
     Dates: start: 20190730, end: 20190813
  45. MEGEST [Concomitant]
     Indication: DECREASED APPETITE
     Route: 048
     Dates: start: 20190703, end: 20190813
  46. MEPEM [Concomitant]
     Active Substance: MEROPENEM
     Indication: SEPSIS
     Route: 042
     Dates: start: 20190730, end: 20190813
  47. ACETAMOL [Concomitant]
     Active Substance: ACETAMINOPHEN
     Indication: PNEUMONITIS
     Dosage: 1.0G ONCE/SINGLE ADMINISTRATION
     Route: 042
     Dates: start: 20190729, end: 20190729

REACTIONS (2)
  - Drug-induced liver injury [Not Recovered/Not Resolved]
  - Hepatic failure [Not Recovered/Not Resolved]

NARRATIVE: CASE EVENT DATE: 20190802
